FAERS Safety Report 12314762 (Version 2)
Quarter: 2016Q2

REPORT INFORMATION
  Report Type: Spontaneous
  Country: SE (occurrence: SE)
  Receive Date: 20160428
  Receipt Date: 20160621
  Transmission Date: 20160815
  Serious: Yes (Disabling, Other)
  Sender: FDA-Public Use
  Company Number: SE-ACTAVIS-2016-08411

PATIENT
  Age: 33 Year
  Sex: Female

DRUGS (1)
  1. LETROZOL ACTAVIS [Suspect]
     Active Substance: LETROZOLE
     Indication: ANOVULATORY CYCLE
     Dosage: 2.5 MG, DAILY (5 DAYS OF TREATMENT)
     Route: 048
     Dates: start: 20160218

REACTIONS (4)
  - Dizziness [Not Recovered/Not Resolved]
  - Nausea [Not Recovered/Not Resolved]
  - Sudden hearing loss [Not Recovered/Not Resolved]
  - Tinnitus [Not Recovered/Not Resolved]

NARRATIVE: CASE EVENT DATE: 20160222
